FAERS Safety Report 12921128 (Version 1)
Quarter: 2016Q4

REPORT INFORMATION
  Report Type: Spontaneous
  Country: US (occurrence: US)
  Receive Date: 20161107
  Receipt Date: 20161107
  Transmission Date: 20170207
  Serious: No
  Sender: FDA-Public Use
  Company Number: ALCN2016US007500

PATIENT
  Sex: Male

DRUGS (2)
  1. DUREZOL [Concomitant]
     Active Substance: DIFLUPREDNATE
     Indication: PRODUCT USED FOR UNKNOWN INDICATION
     Dosage: 1 GTT, QID
     Route: 047
  2. NAPHCON A [Suspect]
     Active Substance: NAPHAZOLINE HYDROCHLORIDE\PHENIRAMINE MALEATE
     Indication: HYPERSENSITIVITY
     Dosage: 1 GTT, BID
     Route: 047
     Dates: start: 2016

REACTIONS (2)
  - Expired product administered [Unknown]
  - Pupil dilation procedure [Not Recovered/Not Resolved]

NARRATIVE: CASE EVENT DATE: 20161104
